FAERS Safety Report 5003287-X (Version None)
Quarter: 2006Q2

REPORT INFORMATION
  Report Type: 
  Country: None (occurrence: None)
  Receive Date: 20060516
  Receipt Date: 20060506
  Transmission Date: 20061013
  Serious: Yes (Hospitalization)
  Sender: FDA-Public Use
  Company Number: GB-JNJFOC-20060502055

PATIENT
  Age: 23 Year
  Sex: Male

DRUGS (6)
  1. RISPERIDONE [Suspect]
     Route: 048
  2. RISPERIDONE [Suspect]
     Indication: DRUG USE FOR UNKNOWN INDICATION
     Route: 048
  3. ESCITALOPRAM OXALATE [Suspect]
     Route: 048
  4. ESCITALOPRAM OXALATE [Suspect]
     Indication: DEPRESSION
     Route: 048
  5. ZOPICLONE [Suspect]
     Indication: DRUG USE FOR UNKNOWN INDICATION
     Dosage: AS NECESSARY
  6. LANSOPRAZOLE [Concomitant]

REACTIONS (10)
  - BALANCE DISORDER [None]
  - COLD SWEAT [None]
  - CONFUSIONAL STATE [None]
  - COORDINATION ABNORMAL [None]
  - DYSARTHRIA [None]
  - MALAISE [None]
  - MULTIPLE DRUG OVERDOSE [None]
  - OVERDOSE [None]
  - SOMNOLENCE [None]
  - TREMOR [None]
